FAERS Safety Report 8818190 (Version 2)
Quarter: 2012Q4

REPORT INFORMATION
  Report Type: 
  Country: US (occurrence: US)
  Receive Date: 20121001
  Receipt Date: 20121204
  Transmission Date: 20130627
  Serious: Yes (Death, Hospitalization, Other)
  Sender: FDA-Public Use
  Company Number: US-GILEAD-2012-0060507

PATIENT
  Sex: Female

DRUGS (1)
  1. LETAIRIS [Suspect]
     Indication: PORTOPULMONARY HYPERTENSION
     Dosage: 5 mg, UNK
     Route: 048
     Dates: start: 20120731

REACTIONS (5)
  - Hepatic failure [Fatal]
  - Gastrointestinal haemorrhage [Unknown]
  - Portal hypertension [Unknown]
  - Gastric disorder [Unknown]
  - Renal failure [Unknown]
